FAERS Safety Report 9576364 (Version 1)
Quarter: 2013Q4

REPORT INFORMATION
  Report Type: Spontaneous
  Country: US (occurrence: US)
  Receive Date: 20131001
  Receipt Date: 20131001
  Transmission Date: 20140711
  Serious: No
  Sender: FDA-Public Use
  Company Number: US-AMGEN-USASP2013002773

PATIENT
  Sex: Male

DRUGS (9)
  1. ENBREL [Suspect]
     Indication: PSORIATIC ARTHROPATHY
     Dosage: 50 MG, QWK
     Route: 058
     Dates: end: 20121208
  2. CLINORIL [Concomitant]
     Dosage: 200 MG, UNK
  3. LOVASTATIN [Concomitant]
     Dosage: 10 MG, UNK
  4. METFORMIN [Concomitant]
     Dosage: 500 MG, UNK
  5. PREVACID [Concomitant]
     Dosage: 15 MG, UNK
  6. ASA [Concomitant]
     Dosage: 325 MG, UNK
  7. OMEGA-3                            /01866101/ [Concomitant]
     Dosage: UNK
  8. MULTIVITAMINS, PLAIN [Concomitant]
     Dosage: UNK
  9. TRIBENZOR [Concomitant]
     Dosage: 5 - 12.5 MG

REACTIONS (4)
  - Diarrhoea [Unknown]
  - Viral infection [Unknown]
  - Nasopharyngitis [Unknown]
  - Upper respiratory tract infection [Unknown]
